FAERS Safety Report 23409942 (Version 4)
Quarter: 2024Q1

REPORT INFORMATION
  Report Type: Spontaneous
  Country: AR (occurrence: AR)
  Receive Date: 20240117
  Receipt Date: 20240305
  Transmission Date: 20240410
  Serious: Yes (Hospitalization)
  Sender: FDA-Public Use
  Company Number: AR-SA-SAC20240116000163

PATIENT
  Age: 14 Year
  Sex: Female

DRUGS (1)
  1. DUPILUMAB [Suspect]
     Active Substance: DUPILUMAB
     Indication: Dermatitis atopic
     Dosage: 300 MG, QOW
     Route: 058
     Dates: start: 202306

REACTIONS (4)
  - Cellulite [Recovering/Resolving]
  - Cellulitis [Unknown]
  - Soft tissue infection [Unknown]
  - Panic attack [Unknown]

NARRATIVE: CASE EVENT DATE: 20240101
